FAERS Safety Report 7263955-6 (Version None)
Quarter: 2011Q1

REPORT INFORMATION
  Report Type: 
  Country: None (occurrence: None)
  Receive Date: 20110130
  Receipt Date: 20101101
  Transmission Date: 20110831
  Serious: No
  Sender: FDA-Public Use
  Company Number: US-ABBOTT-10P-163-0682626-00

PATIENT
  Age: 56 Year
  Sex: Female

DRUGS (2)
  1. HUMIRA [Suspect]
     Indication: COLITIS ULCERATIVE
     Dates: start: 20070601
  2. MESALAMINE [Concomitant]
     Indication: COLITIS ULCERATIVE
     Dosage: EVERY MORNING

REACTIONS (5)
  - PAIN IN EXTREMITY [None]
  - HEADACHE [None]
  - PAIN OF SKIN [None]
  - NECK PAIN [None]
  - INFLUENZA LIKE ILLNESS [None]
